FAERS Safety Report 6202497-3 (Version None)
Quarter: 2009Q2

REPORT INFORMATION
  Report Type: 
  Country: None (occurrence: None)
  Receive Date: 20090526
  Receipt Date: 20080408
  Transmission Date: 20091009
  Serious: No
  Sender: FDA-Public Use
  Company Number: A0721895A

PATIENT
  Sex: Female

DRUGS (1)
  1. LANOXICAPS [Suspect]
     Indication: DRUG USE FOR UNKNOWN INDICATION
     Route: 048

REACTIONS (1)
  - CARDIOACTIVE DRUG LEVEL DECREASED [None]
